FAERS Safety Report 18197448 (Version 1)
Quarter: 2020Q3

REPORT INFORMATION
  Report Type: Spontaneous
  Country: US (occurrence: US)
  Receive Date: 20200825
  Receipt Date: 20200825
  Transmission Date: 20201103
  Serious: Yes (Hospitalization)
  Sender: FDA-Public Use
  Company Number: None

PATIENT
  Sex: Female

DRUGS (31)
  1. FAMOTIDINE. [Concomitant]
     Active Substance: FAMOTIDINE
  2. LEVOTHYROXIN [Concomitant]
     Active Substance: LEVOTHYROXINE
  3. MECLIZINE [Concomitant]
     Active Substance: MECLIZINE HYDROCHLORIDE
  4. PANTOPRAZOLE [Concomitant]
     Active Substance: PANTOPRAZOLE
  5. PREGABLIN [Concomitant]
     Active Substance: PREGABALIN
  6. CARISOPRODOL. [Concomitant]
     Active Substance: CARISOPRODOL
  7. ESCITALOPRAM [Concomitant]
     Active Substance: ESCITALOPRAM OXALATE
  8. FOLIC ACID. [Concomitant]
     Active Substance: FOLIC ACID
  9. OMEPRAZOLE. [Concomitant]
     Active Substance: OMEPRAZOLE
  10. RIZATRIPTAN. [Concomitant]
     Active Substance: RIZATRIPTAN
  11. BUT/APAP/CAF [Concomitant]
  12. CYCLOBENZAPR [Concomitant]
     Active Substance: CYCLOBENZAPRINE
  13. IBUPROFEN. [Concomitant]
     Active Substance: IBUPROFEN
  14. METHYLPRED [Concomitant]
     Active Substance: METHYLPREDNISOLONE
  15. ACTEMRA [Suspect]
     Active Substance: TOCILIZUMAB
     Indication: RHEUMATOID ARTHRITIS
     Route: 058
     Dates: start: 20200325
  16. AMITRIPTLYN [Concomitant]
  17. CLOBETASOL [Concomitant]
     Active Substance: CLOBETASOL
  18. METOPROL SUC [Concomitant]
  19. ONDANSETRON [Concomitant]
     Active Substance: ONDANSETRON
  20. TOPIRAMATE. [Concomitant]
     Active Substance: TOPIRAMATE
  21. TRAMADOL HCL [Concomitant]
     Active Substance: TRAMADOL HYDROCHLORIDE
  22. XIIDRA [Concomitant]
     Active Substance: LIFITEGRAST
  23. EMGALITY [Concomitant]
     Active Substance: GALCANEZUMAB-GNLM
  24. METOPROLOL. [Concomitant]
     Active Substance: METOPROLOL
  25. ZOLPIDEM [Concomitant]
     Active Substance: ZOLPIDEM TARTRATE
  26. AZITHROMYCIN ANHYDROUS. [Concomitant]
     Active Substance: AZITHROMYCIN ANHYDROUS
  27. PREDNISONE. [Concomitant]
     Active Substance: PREDNISONE
  28. ALPRAZOLAM. [Concomitant]
     Active Substance: ALPRAZOLAM
  29. FUROSEMIDE. [Concomitant]
     Active Substance: FUROSEMIDE
  30. NICOTINE TD [Concomitant]
  31. RASUVO [Concomitant]
     Active Substance: METHOTREXATE SODIUM

REACTIONS (1)
  - Arthralgia [None]
